FAERS Safety Report 15919722 (Version 1)
Quarter: 2019Q1

REPORT INFORMATION
  Report Type: Spontaneous
  Country: US (occurrence: US)
  Receive Date: 20190205
  Receipt Date: 20190205
  Transmission Date: 20190417
  Serious: No
  Sender: FDA-Public Use
  Company Number: US-ROCHE-2111264

PATIENT
  Age: 66 Year
  Sex: Male

DRUGS (2)
  1. OMALIZUMAB. [Suspect]
     Active Substance: OMALIZUMAB
     Indication: ALVEOLITIS ALLERGIC
     Route: 058
  2. PREDNISONE. [Concomitant]
     Active Substance: PREDNISONE
     Indication: ALVEOLITIS ALLERGIC
     Route: 048

REACTIONS (2)
  - Intentional product use issue [Unknown]
  - Off label use [Unknown]
